FAERS Safety Report 14589439 (Version 2)
Quarter: 2018Q3

REPORT INFORMATION
  Report Type: Report from Study
  Country: FR (occurrence: FR)
  Receive Date: 20180302
  Receipt Date: 20180725
  Transmission Date: 20181010
  Serious: Yes (Other)
  Sender: FDA-Public Use
  Company Number: FR-ROCHE-2077231

PATIENT
  Age: 38 Year
  Sex: Male
  Weight: 82 kg

DRUGS (10)
  1. PANTOPRAZOLE [Concomitant]
     Active Substance: PANTOPRAZOLE
     Route: 065
     Dates: start: 20180130
  2. ACICLOVIR [Concomitant]
     Active Substance: ACYCLOVIR
     Route: 065
     Dates: start: 20180130, end: 20180212
  3. FLUCONAZOLE. [Concomitant]
     Active Substance: FLUCONAZOLE
  4. IFOSFAMIDE. [Suspect]
     Active Substance: IFOSFAMIDE
     Indication: GERM CELL NEOPLASM
     Dosage: ON 06/FEB/2018, SHE RECEIVED MOST RECENT DOSE OF IFOSFAMIDE 2400MG/M2
     Route: 042
     Dates: start: 20180202
  5. FLAGYL [Concomitant]
     Active Substance: METRONIDAZOLE\METRONIDAZOLE HYDROCHLORIDE
     Route: 065
     Dates: start: 20180207
  6. CARBOPLATINE [Suspect]
     Active Substance: CARBOPLATIN
     Indication: GERM CELL NEOPLASM
     Dosage: DOSE 4 AUC?ON 06/FEB/2018, SHE RECEIVED MOST RECENT DOSE OF CARBOPLATIN 4AUC
     Route: 042
     Dates: start: 20180202
  7. TAZOCILLINE [Concomitant]
     Active Substance: PIPERACILLIN SODIUM\TAZOBACTAM SODIUM
     Route: 065
     Dates: start: 20180130
  8. BEVACIZUMAB. [Suspect]
     Active Substance: BEVACIZUMAB
     Indication: GERM CELL NEOPLASM
     Dosage: ON 01/FEB/2018, SHE RECEIVED MOST RECENT DOSE OF BEVACIZUMAB 7.5 MG/KG
     Route: 042
     Dates: start: 20180201
  9. ETOPOSIDE. [Suspect]
     Active Substance: ETOPOSIDE
     Indication: GERM CELL NEOPLASM
     Dosage: ON 06/FEB/2018, SHE RECEIVED MOST RECENT DOSE OF ETOPOSIDE 300MG/M2
     Route: 042
     Dates: start: 20180202
  10. LYRICA [Concomitant]
     Active Substance: PREGABALIN

REACTIONS (3)
  - Nephropathy toxic [Not Recovered/Not Resolved]
  - Renal tubular necrosis [Recovered/Resolved]
  - Encephalopathy [Recovered/Resolved]

NARRATIVE: CASE EVENT DATE: 20180212
